FAERS Safety Report 7569811-8 (Version None)
Quarter: 2011Q2

REPORT INFORMATION
  Report Type: 
  Country: None (occurrence: None)
  Receive Date: 20110624
  Receipt Date: 20110621
  Transmission Date: 20111010
  Serious: Yes (Hospitalization, Other)
  Sender: FDA-Public Use
  Company Number: US-AMGEN-USASP2010008633

PATIENT
  Age: 20 Year
  Sex: Male
  Weight: 67.8 kg

DRUGS (9)
  1. MAGNESIUM CHLORIDE [Concomitant]
     Route: 048
  2. POTASSIUM [Concomitant]
     Route: 048
  3. NADOLOL [Concomitant]
     Dosage: 80 MG, QD
     Route: 048
  4. FAMOTIDINE [Concomitant]
  5. BACTRIM DS [Concomitant]
     Dosage: UNK UNK, BID
     Route: 048
  6. NPLATE [Suspect]
     Indication: IDIOPATHIC THROMBOCYTOPENIC PURPURA
     Dates: start: 20101018, end: 20101102
  7. DOCUSATE CALCIUM [Concomitant]
     Route: 048
  8. NPLATE [Suspect]
  9. HYDROCODONE BITARTRATE + IBUPROFEN [Concomitant]
     Route: 048

REACTIONS (10)
  - COMPLICATION OF DEVICE REMOVAL [None]
  - PNEUMONIA [None]
  - CARDIOMYOPATHY [None]
  - BLOOD CULTURE POSITIVE [None]
  - ENDOCARDITIS [None]
  - DEVICE RELATED INFECTION [None]
  - VENA CAVA INJURY [None]
  - PYREXIA [None]
  - CONSTIPATION [None]
  - NAUSEA [None]
